FAERS Safety Report 23076116 (Version 3)
Quarter: 2023Q4

REPORT INFORMATION
  Report Type: Report from Study
  Country: CN (occurrence: None)
  Receive Date: 20231017
  Receipt Date: 20231026
  Transmission Date: 20240109
  Serious: Yes (Hospitalization)
  Sender: FDA-Public Use
  Company Number: 2023A229868

PATIENT
  Age: 455 Month
  Sex: Male

DRUGS (7)
  1. DURVALUMAB [Suspect]
     Active Substance: DURVALUMAB
     Indication: Hepatocellular carcinoma
     Route: 042
  2. TREMELIMUMAB [Suspect]
     Active Substance: TREMELIMUMAB
     Indication: Hepatocellular carcinoma
     Route: 042
  3. CELECOXIB [Concomitant]
     Active Substance: CELECOXIB
     Dosage: 200 MG,Q12H
     Dates: start: 20230912
  4. PARACETAMOL AND DIHYDROCODEINE TARTRATE TABLETS [Concomitant]
     Dosage: 510 MG,Q6H
     Dates: start: 20230919
  5. ADEMETIONINE 14-BUTANEDISULFO NATE FOR INJECTION [Concomitant]
     Dates: start: 20230917, end: 20230921
  6. ESOMEPRAZOLE MAGNESIUM [Concomitant]
     Active Substance: ESOMEPRAZOLE\ESOMEPRAZOLE MAGNESIUM\ESOMEPRAZOLE MAGNESIUM DIHYDRATE
     Dates: start: 20230921
  7. POLYENE PHOSPHATIDYLCHOLINE CAPSULES [Concomitant]
     Dates: start: 20230921

REACTIONS (1)
  - Hepatic function abnormal [Not Recovered/Not Resolved]

NARRATIVE: CASE EVENT DATE: 20231007
